FAERS Safety Report 6006073-7 (Version None)
Quarter: 2008Q4

REPORT INFORMATION
  Report Type: 
  Country: None (occurrence: None)
  Receive Date: 20081217
  Receipt Date: 20081204
  Transmission Date: 20090506
  Serious: Yes (Hospitalization, Other)
  Sender: FDA-Public Use
  Company Number: US-ELI_LILLY_AND_COMPANY-US200812001788

PATIENT
  Sex: Female

DRUGS (11)
  1. BYETTA [Suspect]
     Dosage: 10 UG, 2/D
     Route: 058
     Dates: start: 20070401, end: 20080801
  2. METFORMIN HCL [Concomitant]
     Indication: BLOOD GLUCOSE
     Dosage: 1000 MG, 2/D
  3. LISINOPRIL AND HYDROCHLOROTHIAZIDE [Concomitant]
     Indication: BLOOD PRESSURE
     Dosage: UNK, DAILY (1/D)
  4. SYNTHROID [Concomitant]
     Indication: THYROID DISORDER
     Dosage: 75 MG, DAILY (1/D)
  5. PAXIL [Concomitant]
     Dosage: 20 MG, DAILY (1/D)
  6. VYTORIN [Concomitant]
     Dosage: UNK, DAILY (1/D)
  7. PREVACID [Concomitant]
     Dosage: 30 MG, DAILY (1/D)
  8. ASPIRIN [Concomitant]
     Dosage: 81 MG, DAILY (1/D)
  9. CENTRUM SILVER [Concomitant]
     Dosage: UNK, DAILY (1/D)
  10. CALTRATE [Concomitant]
     Dosage: 600 MG, 2/D
  11. FISH OIL [Concomitant]
     Dosage: 1000 MG, 2/D

REACTIONS (2)
  - ABDOMINAL PAIN [None]
  - PANCREATITIS [None]
